FAERS Safety Report 25311125 (Version 1)
Quarter: 2025Q2

REPORT INFORMATION
  Report Type: Spontaneous
  Country: DE (occurrence: DE)
  Receive Date: 20250514
  Receipt Date: 20250514
  Transmission Date: 20250717
  Serious: Yes (Congenital Anomaly)
  Sender: DR REDDYS
  Company Number: None

PATIENT
  Sex: Female
  Weight: 3.65 kg

DRUGS (8)
  1. VENLAFAXINE [Suspect]
     Active Substance: VENLAFAXINE HYDROCHLORIDE
     Indication: Depression
     Route: 064
     Dates: start: 201912, end: 202008
  2. SEROQUEL [Suspect]
     Active Substance: QUETIAPINE FUMARATE
     Indication: Anxiety disorder
     Route: 064
     Dates: start: 201912, end: 202008
  3. INFLUENZA VIRUS VACCINE [Concomitant]
     Active Substance: INFLUENZA VIRUS VACCINE
     Indication: Immunisation
     Route: 064
     Dates: start: 201904, end: 201904
  4. LEVOTHYROXINE SODIUM [Concomitant]
     Active Substance: LEVOTHYROXINE SODIUM
     Indication: Hypothyroidism
     Route: 064
     Dates: start: 201912, end: 202008
  5. POLYETHYLENE GLYCOLS [Concomitant]
     Active Substance: POLYETHYLENE GLYCOLS
     Indication: Constipation
     Route: 064
  6. METHYLDOPA [Concomitant]
     Active Substance: METHYLDOPA
     Indication: Gestational hypertension
     Route: 064
     Dates: start: 202007, end: 202008
  7. LIDOCAINE [Concomitant]
     Active Substance: LIDOCAINE
     Indication: Haemorrhoids
     Route: 064
  8. XYLOMETAZOLINE [Concomitant]
     Active Substance: XYLOMETAZOLINE
     Indication: Nasopharyngitis
     Dosage: 1X/D
     Route: 064
     Dates: start: 202002, end: 202003

REACTIONS (3)
  - Haemangioma congenital [Unknown]
  - Atrial septal defect [Not Recovered/Not Resolved]
  - Foetal exposure during pregnancy [Unknown]
